FAERS Safety Report 8814468 (Version 1)
Quarter: 2012Q4

REPORT INFORMATION
  Report Type: Spontaneous
  Country: US (occurrence: None)
  Receive Date: 20120927
  Receipt Date: 20120927
  Transmission Date: 20130627
  Serious: No
  Sender: FDA-Public Use
  Company Number: None

PATIENT
  Age: 58 Year
  Sex: Female
  Weight: 48.99 kg

DRUGS (5)
  1. ENBREL [Suspect]
     Indication: RHEUMATOID ARTHRITIS
     Dosage: 50mg weekly Subcutaneous
     Route: 058
     Dates: start: 20120916
  2. ENBREL [Suspect]
     Indication: RHEUMATOID ARTHRITIS
     Dates: start: 20120923
  3. CELEBREX [Concomitant]
  4. NORVASC [Concomitant]
  5. FOSAMAX [Concomitant]

REACTIONS (2)
  - Nausea [None]
  - Vomiting [None]
